FAERS Safety Report 23701536 (Version 1)
Quarter: 2024Q2

REPORT INFORMATION
  Report Type: Spontaneous
  Country: US (occurrence: US)
  Receive Date: 20240403
  Receipt Date: 20240403
  Transmission Date: 20240716
  Serious: Yes (Other)
  Sender: FDA-Public Use
  Company Number: US-PROCTER_AND_GAMBLE-PH24002359

PATIENT
  Sex: Male

DRUGS (2)
  1. VICKS DAYQUIL HBP [Suspect]
     Active Substance: ACETAMINOPHEN\DEXTROMETHORPHAN HYDROBROMIDE
     Indication: Cough
     Dosage: 15 MILLILITER, MORNING, 1/2 OF THE DOSE CUP
     Route: 048
     Dates: start: 20240308
  2. VICKS DAYQUIL HBP [Suspect]
     Active Substance: ACETAMINOPHEN\DEXTROMETHORPHAN HYDROBROMIDE
     Indication: Coronavirus infection

REACTIONS (5)
  - Cardiac flutter [Unknown]
  - Nausea [Unknown]
  - Palpitations [Unknown]
  - Intentional underdose [Unknown]
  - Product use in unapproved indication [Unknown]

NARRATIVE: CASE EVENT DATE: 20240308
